FAERS Safety Report 25395467 (Version 1)
Quarter: 2025Q2

REPORT INFORMATION
  Report Type: Spontaneous
  Country: ES (occurrence: ES)
  Receive Date: 20250604
  Receipt Date: 20250604
  Transmission Date: 20250717
  Serious: Yes (Death, Life-Threatening, Other)
  Sender: AMGEN
  Company Number: ES-AMGEN-ESPSP2025104311

PATIENT
  Age: 2 Year

DRUGS (11)
  1. BEVACIZUMAB [Suspect]
     Active Substance: BEVACIZUMAB
     Indication: Interstitial lung disease
     Route: 040
  2. THALIDOMIDE [Concomitant]
     Active Substance: THALIDOMIDE
     Route: 065
  3. CELECOXIB [Concomitant]
     Active Substance: CELECOXIB
     Route: 065
  4. FENOFIBRATE [Concomitant]
     Active Substance: FENOFIBRATE
     Route: 065
  5. ETOPOSIDE [Concomitant]
     Active Substance: ETOPOSIDE
     Route: 065
  6. CYCLOPHOSPHAMIDE [Concomitant]
     Active Substance: CYCLOPHOSPHAMIDE
     Route: 065
  7. ALBUTEROL [Concomitant]
     Active Substance: ALBUTEROL
  8. PREDNISONE [Concomitant]
     Active Substance: PREDNISONE
     Route: 048
  9. RITUXIMAB [Concomitant]
     Active Substance: RITUXIMAB
     Route: 065
  10. AZATHIOPRINE [Concomitant]
     Active Substance: AZATHIOPRINE
     Route: 065
  11. RUXOLITINIB [Concomitant]
     Active Substance: RUXOLITINIB
     Route: 065

REACTIONS (8)
  - Death [Fatal]
  - Respiratory distress [Unknown]
  - Hypoxia [Unknown]
  - Pneumonitis [Unknown]
  - Pneumomediastinum [Unknown]
  - Lower respiratory tract infection viral [Unknown]
  - Rhinovirus infection [Unknown]
  - Off label use [Unknown]
